FAERS Safety Report 4706361-8 (Version None)
Quarter: 2005Q2

REPORT INFORMATION
  Report Type: 
  Country: None (occurrence: None)
  Receive Date: 20050629
  Receipt Date: 20050411
  Transmission Date: 20051028
  Serious: No
  Sender: FDA-Public Use
  Company Number: 05P-163-0296967-00

PATIENT
  Age: 57 Year
  Sex: Male
  Weight: 117.7 kg

DRUGS (5)
  1. HUMIRA [Suspect]
     Indication: RHEUMATOID ARTHRITIS
     Dosage: 40 MG, 1 IN 2 WK, SUBCUTANEOUS
     Route: 058
     Dates: start: 20050212
  2. METHOTREXATE [Concomitant]
  3. NAPROXEN SODIUM [Concomitant]
  4. SAWPALMETTO [Concomitant]
  5. PREDNISONE TAB [Concomitant]

REACTIONS (1)
  - PROCEDURAL COMPLICATION [None]
